FAERS Safety Report 4655186-0 (Version None)
Quarter: 2005Q2

REPORT INFORMATION
  Report Type: 
  Country: None (occurrence: None)
  Receive Date: 20050506
  Receipt Date: 20050503
  Transmission Date: 20051028
  Serious: Yes (Other)
  Sender: FDA-Public Use
  Company Number: US-GLAXOSMITHKLINE-A0557077A

PATIENT
  Age: 10 Day
  Sex: Male

DRUGS (2)
  1. ZOVIRAX [Suspect]
  2. NO CONCURRENT MEDICATION [Concomitant]

REACTIONS (6)
  - DRUG EXPOSURE DURING PREGNANCY [None]
  - GASTROINTESTINAL DISORDER [None]
  - NEONATAL DISORDER [None]
  - RENAL FAILURE [None]
  - RENAL FAILURE NEONATAL [None]
  - RENAL TUBULAR DISORDER [None]
